FAERS Safety Report 7588810-3 (Version None)
Quarter: 2011Q2

REPORT INFORMATION
  Report Type: 
  Country: None (occurrence: None)
  Receive Date: 20110603
  Receipt Date: 20110215
  Transmission Date: 20111010
  Serious: No
  Sender: FDA-Public Use
  Company Number: 2011SP007443

PATIENT
  Sex: Female

DRUGS (1)
  1. SAPHRIS [Suspect]
     Indication: PRODUCT USED FOR UNKNOWN INDICATION
     Dosage: 5 MG;SL
     Route: 060
     Dates: start: 20110214, end: 20110215

REACTIONS (2)
  - DIZZINESS [None]
  - AGITATION [None]
